FAERS Safety Report 9159560 (Version 2)
Quarter: 2013Q2

REPORT INFORMATION
  Report Type: Spontaneous
  Country: CN (occurrence: None)
  Receive Date: 20130222
  Receipt Date: 20130628
  Transmission Date: 20140414
  Serious: Yes (Hospitalization)
  Sender: FDA-Public Use
  Company Number: VAL_01423_2013

PATIENT
  Sex: Male
  Weight: 51 kg

DRUGS (2)
  1. BENAZEPRIL [Suspect]
     Indication: HYPERTENSION
     Route: 048
     Dates: start: 20100102
  2. AMLODIPINE [Suspect]
     Indication: PRODUCT USED FOR UNKNOWN INDICATION
     Route: 048

REACTIONS (1)
  - Bronchitis [None]
